FAERS Safety Report 7887876-0 (Version None)
Quarter: 2011Q4

REPORT INFORMATION
  Report Type: 
  Country: None (occurrence: None)
  Receive Date: 20111103
  Receipt Date: 20111103
  Transmission Date: 20120403
  Serious: Yes (Other)
  Sender: FDA-Public Use
  Company Number: None

PATIENT
  Age: 49 Year
  Sex: Female
  Weight: 48.987 kg

DRUGS (1)
  1. PROPRANOLOL [Suspect]
     Indication: ARRHYTHMIA
     Dosage: 120 MG
     Route: 048
     Dates: start: 20111020, end: 20111102

REACTIONS (1)
  - PALPITATIONS [None]
